FAERS Safety Report 8412850-5 (Version None)
Quarter: 2012Q2

REPORT INFORMATION
  Report Type: 
  Country: None (occurrence: None)
  Receive Date: 20120605
  Receipt Date: 20120524
  Transmission Date: 20120825
  Serious: No
  Sender: FDA-Public Use
  Company Number: US-AMGEN-USASP2012027727

PATIENT
  Age: 37 Year
  Sex: Female

DRUGS (3)
  1. COD LIVER OIL [Concomitant]
     Dosage: UNK
  2. ENBREL [Suspect]
     Indication: PSORIASIS
     Dosage: 50 MG, QWK
     Dates: start: 20080901
  3. MULTI-VITAMINS [Concomitant]
     Dosage: UNK

REACTIONS (5)
  - PSORIASIS [None]
  - ABDOMINAL PAIN [None]
  - NAUSEA [None]
  - MYALGIA [None]
  - BONE PAIN [None]
